FAERS Safety Report 5247685-8 (Version None)
Quarter: 2007Q1

REPORT INFORMATION
  Report Type: 
  Country: None (occurrence: None)
  Receive Date: 20070220
  Receipt Date: 20070204
  Transmission Date: 20070707
  Serious: Yes (Hospitalization)
  Sender: FDA-Public Use
  Company Number: 236067

PATIENT
  Sex: Female

DRUGS (1)
  1. RITUXAN [Suspect]
     Indication: HEPATIC NEOPLASM MALIGNANT
     Dosage: 375 MG/M2, 1/WEEK, INTRAVENOUS
     Route: 042
     Dates: start: 20070203

REACTIONS (3)
  - BLOOD PRESSURE DECREASED [None]
  - DIALYSIS [None]
  - RENAL FAILURE ACUTE [None]
